FAERS Safety Report 5045569-1 (Version None)
Quarter: 2006Q2

REPORT INFORMATION
  Report Type: 
  Country: None (occurrence: None)
  Receive Date: 20060601
  Receipt Date: 20060327
  Transmission Date: 20061013
  Serious: No
  Sender: FDA-Public Use
  Company Number: 2006-BP-03419BP

PATIENT
  Sex: Female

DRUGS (5)
  1. SPIRIVA [Suspect]
     Indication: CHRONIC OBSTRUCTIVE PULMONARY DISEASE
     Dosage: 18 MCG (18 MCG, 1 IN 1 D), IH
     Route: 055
     Dates: start: 20060201, end: 20060325
  2. SYNTHROID [Concomitant]
  3. (ALDACTONE) WITH HCTZ (HYDROCHLOROTHIAZIDE) [Concomitant]
  4. PAXIL [Concomitant]
  5. ALDACTONE WITH (HCTZ) (SPIRONOLACTONE) [Concomitant]

REACTIONS (8)
  - CHEST PAIN [None]
  - CLUMSINESS [None]
  - COUGH [None]
  - DRY MOUTH [None]
  - INFLUENZA LIKE ILLNESS [None]
  - OEDEMA PERIPHERAL [None]
  - VOMITING [None]
  - WEIGHT INCREASED [None]
